FAERS Safety Report 4429228-1 (Version None)
Quarter: 2004Q3

REPORT INFORMATION
  Report Type: 
  Country: None (occurrence: None)
  Receive Date: 20040817
  Receipt Date: 20040817
  Transmission Date: 20050211
  Serious: Yes (Disabling, Other)
  Sender: FDA-Public Use
  Company Number: None

PATIENT
  Age: 50 Year
  Sex: Female
  Weight: 74.8435 kg

DRUGS (1)
  1. CREST NIGHT EFFECTS PROCTER AND GAMBLE [Suspect]
     Dosage: 6 NIGHTS DENTAL
     Route: 004

REACTIONS (4)
  - APPLICATION SITE REACTION [None]
  - ENAMEL ANOMALY [None]
  - TOOTH DISORDER [None]
  - TOOTH EROSION [None]
